FAERS Safety Report 7729768-3 (Version None)
Quarter: 2011Q3

REPORT INFORMATION
  Report Type: 
  Country: None (occurrence: None)
  Receive Date: 20110906
  Receipt Date: 20110831
  Transmission Date: 20111222
  Serious: Yes (Hospitalization)
  Sender: FDA-Public Use
  Company Number: GB-SANOFI-AVENTIS-2011SA056418

PATIENT
  Age: 46 Year
  Sex: Female

DRUGS (2)
  1. ENOXAPARIN SODIUM [Suspect]
     Route: 058
  2. INVESTIGATIONAL DRUG [Suspect]
     Route: 048

REACTIONS (2)
  - VOMITING [None]
  - NAUSEA [None]
